FAERS Safety Report 17451708 (Version 1)
Quarter: 2020Q1

REPORT INFORMATION
  Report Type: Spontaneous
  Country: ES (occurrence: ES)
  Receive Date: 20200224
  Receipt Date: 20200224
  Transmission Date: 20200409
  Serious: Yes (Other)
  Sender: FDA-Public Use
  Company Number: ES-ACTELION-A-CH2020-201953

PATIENT
  Age: 55 Year
  Sex: Male

DRUGS (2)
  1. ZAVESCA [Suspect]
     Active Substance: MIGLUSTAT
     Indication: GAUCHER^S DISEASE TYPE I
     Route: 048
  2. IMIGLUCERASE [Suspect]
     Active Substance: IMIGLUCERASE
     Indication: GAUCHER^S DISEASE TYPE I
     Route: 065

REACTIONS (12)
  - Schizoaffective disorder [Unknown]
  - On and off phenomenon [Unknown]
  - Hypokinesia [Unknown]
  - Dyskinesia [Unknown]
  - Pain [Unknown]
  - Muscle rigidity [Unknown]
  - Parkinson^s disease [Unknown]
  - Balance disorder [Unknown]
  - Dysarthria [Unknown]
  - Bradykinesia [Unknown]
  - Cognitive disorder [Unknown]
  - Amyloid related imaging abnormalities [Unknown]
